FAERS Safety Report 4598211-8 (Version None)
Quarter: 2005Q1

REPORT INFORMATION
  Report Type: 
  Country: None (occurrence: None)
  Receive Date: 20050304
  Receipt Date: 20050223
  Transmission Date: 20050727
  Serious: Yes (Life-Threatening, Hospitalization, Other)
  Sender: FDA-Public Use
  Company Number: US-BRISTOL-MYERS SQUIBB COMPANY-12874285

PATIENT
  Age: 35 Year
  Sex: Female
  Weight: 47 kg

DRUGS (9)
  1. CETUXIMAB [Suspect]
     Indication: COLORECTAL CANCER METASTATIC
     Dosage: 1ST CETUXIMAB INFUSION ADMINISTERED ON 02-FEB-2005.
     Route: 042
     Dates: start: 20050214
  2. LEUCOVORIN [Suspect]
     Indication: COLORECTAL CANCER METASTATIC
     Dosage: 1ST LEUCOVORIN INFUSION ADMINISTERED ON 02-FEB-2005.
     Route: 042
     Dates: start: 20050214
  3. OXALIPLATIN [Suspect]
     Indication: COLORECTAL CANCER METASTATIC
     Dosage: 1ST OXALIPLATIN INFUSION ADMINISTERED ON 02-FEB-2005.
     Route: 042
     Dates: start: 20050214
  4. FLUOROURACIL [Suspect]
     Indication: COLORECTAL CANCER METASTATIC
     Dosage: 1ST FLUOROURACIL INFUSION ADMINISTERED 02-FEB-2005 (572 MG IV PUSH AND 3432 MG IV).
     Route: 042
     Dates: start: 20050214
  5. IRON [Concomitant]
     Dosage: IRON PO QD.
     Route: 048
     Dates: start: 20050101
  6. COMPAZINE [Concomitant]
     Indication: NAUSEA
     Dosage: COMPAZINE 10 MG PO Q 4-6 HOURS.
     Route: 048
     Dates: start: 20050204
  7. KEFLEX [Concomitant]
     Indication: INFECTION
     Dosage: KEFLEX 250 MG PO QD.
     Route: 048
     Dates: start: 20050216
  8. NYSTATIN [Concomitant]
     Indication: PHARYNGOLARYNGEAL PAIN
     Dosage: NYSTATIN 10 CC QID.
     Dates: start: 20050204, end: 20050214
  9. CLINDAMYCIN [Concomitant]
     Indication: ACNE
     Dosage: CLINDAMYCIN 1% TOPICAL BID.
     Route: 061
     Dates: start: 20050208

REACTIONS (7)
  - AUTONOMIC NERVOUS SYSTEM IMBALANCE [None]
  - DEHYDRATION [None]
  - HYPOVOLAEMIA [None]
  - NAUSEA [None]
  - NEUTROPENIA [None]
  - RENAL FAILURE ACUTE [None]
  - VOMITING [None]
